FAERS Safety Report 9253953 (Version 1)
Quarter: 2013Q2

REPORT INFORMATION
  Report Type: Spontaneous
  Country: US (occurrence: None)
  Receive Date: 20130419
  Receipt Date: 20130419
  Transmission Date: 20140414
  Serious: Yes (Other)
  Sender: FDA-Public Use
  Company Number: ACO_35463_2013

PATIENT
  Age: 56 Year
  Sex: Female
  Weight: 104.3 kg

DRUGS (6)
  1. AMPYRA (DALFAMPRIDINE) TABLET, 10MG [Suspect]
     Indication: MULTIPLE SCLEROSIS
     Route: 048
     Dates: start: 2012
  2. REBIF [Concomitant]
  3. KEPRA (LEVETIRACETAM) [Concomitant]
  4. PROVIGIL (MODAFINIL) [Concomitant]
  5. TIZANIDINE (TIZANIDINE) TABLET [Concomitant]
  6. LAMICTAL (LAMOTRIGINE) TABLET [Concomitant]

REACTIONS (2)
  - Diabetes mellitus [None]
  - Hypothyroidism [None]
